FAERS Safety Report 6631130-1 (Version None)
Quarter: 2010Q1

REPORT INFORMATION
  Report Type: 
  Country: None (occurrence: None)
  Receive Date: 20100311
  Receipt Date: 20100304
  Transmission Date: 20100710
  Serious: Yes (Hospitalization)
  Sender: FDA-Public Use
  Company Number: FR-ABBOTT-09P-056-0563858-00

PATIENT
  Sex: Male
  Weight: 56 kg

DRUGS (6)
  1. HUMIRA [Suspect]
     Indication: CROHN'S DISEASE
     Dosage: 8 ML
     Route: 058
     Dates: start: 20090223
  2. PREDNISONE [Concomitant]
     Indication: CROHN'S DISEASE
     Route: 048
     Dates: start: 20081115, end: 20090329
  3. PREDNISONE [Concomitant]
     Dates: start: 20090330
  4. AZATHIOPRINE [Concomitant]
     Indication: CROHN'S DISEASE
     Route: 048
     Dates: start: 20071206
  5. VITAMIN D [Concomitant]
     Indication: CROHN'S DISEASE
     Route: 048
     Dates: start: 20090107
  6. CALCIUM SANDOZ [Concomitant]
     Indication: CROHN'S DISEASE
     Route: 048
     Dates: start: 20080801

REACTIONS (1)
  - CROHN'S DISEASE [None]
